FAERS Safety Report 8646049 (Version 7)
Quarter: 2014Q2

REPORT INFORMATION
  Report Type: Spontaneous
  Country: US (occurrence: US)
  Receive Date: 20120702
  Receipt Date: 20140519
  Transmission Date: 20141212
  Serious: Yes (Hospitalization, Disabling, Other)
  Sender: FDA-Public Use
  Company Number: US-MERCK-1206USA04644

PATIENT
  Sex: Female

DRUGS (3)
  1. FOSAMAX [Suspect]
     Indication: OSTEOPENIA
     Dosage: 70 MG, QW
     Route: 048
     Dates: start: 20050131, end: 20071203
  2. PREVACID [Concomitant]
     Dosage: UNK
     Dates: start: 1993
  3. CENTRUM SILVER [Concomitant]
     Dosage: UNK
     Dates: start: 2000

REACTIONS (21)
  - Femur fracture [Recovered/Resolved]
  - Intramedullary rod insertion [Recovered/Resolved]
  - Low turnover osteopathy [Not Recovered/Not Resolved]
  - Femur fracture [Not Recovered/Not Resolved]
  - Stress fracture [Not Recovered/Not Resolved]
  - Knee arthroplasty [Unknown]
  - Osteoporosis [Not Recovered/Not Resolved]
  - Radiculopathy [Unknown]
  - Carpal tunnel decompression [Recovering/Resolving]
  - Carpal tunnel syndrome [Recovering/Resolving]
  - Carpal tunnel decompression [Recovering/Resolving]
  - Medical device discomfort [Unknown]
  - Joint injury [Recovered/Resolved]
  - Endodontic procedure [Unknown]
  - Therapeutic procedure [Unknown]
  - Type 2 diabetes mellitus [Unknown]
  - Osteoarthritis [Unknown]
  - Hypertension [Unknown]
  - Appendicectomy [Unknown]
  - Transfusion [Unknown]
  - Scoliosis [Unknown]
